FAERS Safety Report 11565392 (Version 1)
Quarter: 2015Q3

REPORT INFORMATION
  Report Type: Spontaneous
  Country: US (occurrence: US)
  Receive Date: 20150916
  Receipt Date: 20150916
  Transmission Date: 20151125
  Serious: No
  Sender: FDA-Public Use
  Company Number: US-ELI_LILLY_AND_COMPANY-US200904006418

PATIENT
  Age: 55 Year
  Sex: Female

DRUGS (5)
  1. FORTEO [Suspect]
     Active Substance: TERIPARATIDE
     Indication: OSTEOPOROSIS
     Dates: start: 200810, end: 200812
  2. CITRATE [Concomitant]
     Active Substance: CITRIC ACID MONOHYDRATE
  3. VITAMIN D [Concomitant]
     Active Substance: CHOLECALCIFEROL
  4. FORTEO [Suspect]
     Active Substance: TERIPARATIDE
     Dates: start: 200901, end: 200904
  5. PERCOCET [Concomitant]
     Active Substance: ACETAMINOPHEN\OXYCODONE HYDROCHLORIDE
     Indication: PAIN

REACTIONS (10)
  - Pain [Unknown]
  - Mobility decreased [Unknown]
  - Arthralgia [Unknown]
  - Fibromyalgia [Not Recovered/Not Resolved]
  - Back pain [Recovered/Resolved]
  - Foot fracture [Recovered/Resolved]
  - Headache [Unknown]
  - Eye pain [Unknown]
  - Pain in extremity [Unknown]
  - Insomnia [Unknown]

NARRATIVE: CASE EVENT DATE: 200811
